FAERS Safety Report 19447799 (Version 2)
Quarter: 2021Q2

REPORT INFORMATION
  Report Type: Spontaneous
  Country: US (occurrence: US)
  Receive Date: 20210622
  Receipt Date: 20210624
  Transmission Date: 20210717
  Serious: No
  Sender: FDA-Public Use
  Company Number: US-AMGEN-USASP2021079690

PATIENT
  Sex: Female

DRUGS (2)
  1. RIABNI [Suspect]
     Active Substance: RITUXIMAB-ARRX
     Indication: OFF LABEL USE
  2. RIABNI [Suspect]
     Active Substance: RITUXIMAB-ARRX
     Indication: PEMPHIGOID
     Dosage: UNK
     Route: 065

REACTIONS (2)
  - Off label use [Unknown]
  - Headache [Unknown]
